FAERS Safety Report 4541027-9 (Version None)
Quarter: 2004Q4

REPORT INFORMATION
  Report Type: 
  Country: None (occurrence: None)
  Receive Date: 20041228
  Receipt Date: 20041207
  Transmission Date: 20050328
  Serious: Yes (Hospitalization, Other)
  Sender: FDA-Public Use
  Company Number: GB-JNJFOC-20041202496

PATIENT
  Age: 13 Year
  Sex: Female
  Weight: 50 kg

DRUGS (5)
  1. VERMOX [Suspect]
     Indication: DRUG USE FOR UNKNOWN INDICATION
     Dosage: 100 MG, ORAL
     Route: 048
     Dates: start: 20041119, end: 20041202
  2. YENTREVE (ALL OTHER THERAPEUTIC PRODUCTS) UNKNOWN [Suspect]
     Indication: STRESS INCONTINENCE
     Dosage: 20 MG, ORAL
     Route: 048
     Dates: start: 20041124, end: 20041203
  3. TEGRETOL [Concomitant]
  4. MEFENAMIC ACID [Concomitant]
  5. AMOXICILLIN [Concomitant]

REACTIONS (2)
  - CONVULSION [None]
  - STRESS INCONTINENCE [None]
